FAERS Safety Report 7214758-X (Version None)
Quarter: 2011Q1

REPORT INFORMATION
  Report Type: 
  Country: None (occurrence: None)
  Receive Date: 20110107
  Receipt Date: 20100325
  Transmission Date: 20110831
  Serious: No
  Sender: FDA-Public Use
  Company Number: A0841682A

PATIENT
  Age: 57 Year
  Sex: Female

DRUGS (5)
  1. VITAMIN D [Concomitant]
  2. MULTI-VITAMIN [Concomitant]
  3. ESTRADIOL [Concomitant]
  4. CALCIUM [Concomitant]
  5. LOVAZA [Suspect]
     Dosage: 2G TWICE PER DAY
     Route: 048
     Dates: start: 20070701, end: 20100113

REACTIONS (2)
  - ARTHRITIS [None]
  - OSTEOPENIA [None]
